FAERS Safety Report 5972235-8 (Version None)
Quarter: 2008Q4

REPORT INFORMATION
  Report Type: 
  Country: None (occurrence: None)
  Receive Date: 20081201
  Receipt Date: 20071119
  Transmission Date: 20090506
  Serious: No
  Sender: FDA-Public Use
  Company Number: US-TEVA-165169USA

PATIENT
  Sex: Female
  Weight: 54.48 kg

DRUGS (5)
  1. SALBUTAMOL SULFATE INHALATION, 0.09 MG [Suspect]
     Dosage: TWICE, 2 SPRAYS EACH TIME
     Route: 055
     Dates: start: 20071114
  2. FLUOXETINE HYDROCHLORIDE [Concomitant]
  3. THEOPHYLLINE [Concomitant]
  4. DIAZEPAM [Concomitant]
  5. SERETIDE [Concomitant]

REACTIONS (1)
  - DYSPNOEA [None]
